FAERS Safety Report 4831129-1 (Version None)
Quarter: 2005Q4

REPORT INFORMATION
  Report Type: 
  Country: None (occurrence: None)
  Receive Date: 20051114
  Receipt Date: 20051102
  Transmission Date: 20060501
  Serious: Yes (Hospitalization)
  Sender: FDA-Public Use
  Company Number: RENA-11594

PATIENT
  Age: 57 Year
  Sex: Male

DRUGS (1)
  1. PHOSBLOCK-250 MG TABLETS [Suspect]
     Indication: HYPERPHOSPHATAEMIA
     Dates: start: 20050713, end: 20050822

REACTIONS (3)
  - COLONIC POLYP [None]
  - CONSTIPATION [None]
  - THERAPY NON-RESPONDER [None]
